FAERS Safety Report 5822206-7 (Version None)
Quarter: 2008Q3

REPORT INFORMATION
  Report Type: 
  Country: None (occurrence: None)
  Receive Date: 20080723
  Receipt Date: 20080723
  Transmission Date: 20090109
  Serious: Yes (Disabling)
  Sender: FDA-Public Use
  Company Number: None

PATIENT
  Sex: Male
  Weight: 74.8435 kg

DRUGS (1)
  1. LEVAQUIN [Suspect]
     Indication: PNEUMONIA
     Dosage: 1 TABLET DAILY PO
     Route: 048
     Dates: start: 20080717, end: 20080720

REACTIONS (6)
  - ANOREXIA [None]
  - FLIGHT OF IDEAS [None]
  - GLOSSITIS [None]
  - INSOMNIA [None]
  - POOR QUALITY SLEEP [None]
  - TONGUE HAEMORRHAGE [None]
